FAERS Safety Report 4978138-X (Version None)
Quarter: 2006Q2

REPORT INFORMATION
  Report Type: 
  Country: None (occurrence: None)
  Receive Date: 20060417
  Receipt Date: 20060331
  Transmission Date: 20061013
  Serious: Yes (Death, Hospitalization)
  Sender: FDA-Public Use
  Company Number: CERZ-11144

PATIENT
  Age: 86 Year
  Sex: Male

DRUGS (3)
  1. CEREZYME [Suspect]
     Indication: GAUCHER'S DISEASE
     Dosage: 5200 UNITS Q4WKS IV
     Route: 042
     Dates: end: 20051220
  2. CEREZYME [Suspect]
     Indication: GAUCHER'S DISEASE
     Dates: start: 20020101, end: 20031201
  3. CEREZYME [Suspect]
     Indication: GAUCHER'S DISEASE
     Dates: start: 19970424

REACTIONS (7)
  - CARDIAC FAILURE CONGESTIVE [None]
  - CHRONIC OBSTRUCTIVE PULMONARY DISEASE [None]
  - CONDITION AGGRAVATED [None]
  - MULTI-ORGAN FAILURE [None]
  - PLEURAL EFFUSION [None]
  - PULMONARY HYPERTENSION [None]
  - PULMONARY OEDEMA [None]
